FAERS Safety Report 7027752-9 (Version None)
Quarter: 2010Q4

REPORT INFORMATION
  Report Type: 
  Country: None (occurrence: None)
  Receive Date: 20101005
  Receipt Date: 20100517
  Transmission Date: 20110411
  Serious: Yes (Other)
  Sender: FDA-Public Use
  Company Number: US-ASTRAZENECA-2010SE46441

PATIENT
  Age: 18415 Day
  Sex: Female
  Weight: 118.4 kg

DRUGS (16)
  1. SEROQUEL [Suspect]
     Route: 048
     Dates: start: 20040913
  2. DARVOCET-N 100 [Concomitant]
     Dates: start: 20040913
  3. PAXIL [Concomitant]
     Dates: start: 20040913
  4. ALLEGRA [Concomitant]
     Dates: start: 20040913
  5. CAPEX [Concomitant]
     Dosage: 1 QD
     Dates: start: 20040913
  6. CUTIVATE [Concomitant]
     Dosage: 1 QD
     Dates: start: 20040913
  7. DETROL LA [Concomitant]
     Dates: start: 20040913
  8. DICYCLOMINE [Concomitant]
     Dates: start: 20040913
  9. FENOPROFEN CALCIUM [Concomitant]
     Dates: start: 20040913
  10. GLUCOPHAGE [Concomitant]
     Dates: start: 20040913
  11. IMITREX [Concomitant]
     Dates: start: 20040913
  12. LORATADINE [Concomitant]
     Dosage: 1 QD
     Dates: start: 20040913
  13. LORAZEPAM [Concomitant]
     Dates: start: 20040913
  14. NASONEX [Concomitant]
     Dosage: 50 MCG 1 QD
     Dates: start: 20040913
  15. NITROFURANTOIN [Concomitant]
     Dates: start: 20040913
  16. PHENAZOPYRIDINE HCL TAB [Concomitant]
     Dates: start: 20040913

REACTIONS (21)
  - ABDOMINAL PAIN UPPER [None]
  - ARTHROPATHY [None]
  - BRONCHITIS [None]
  - CARDIAC MURMUR [None]
  - CHEST PAIN [None]
  - CHRONIC OBSTRUCTIVE PULMONARY DISEASE [None]
  - DIABETIC NEUROPATHY [None]
  - DIARRHOEA [None]
  - EXCORIATION [None]
  - HAEMATOCHEZIA [None]
  - HEADACHE [None]
  - HYPERTENSIVE HEART DISEASE [None]
  - MIGRAINE [None]
  - MITRAL VALVE DISEASE [None]
  - NEURITIS [None]
  - RESPIRATORY DISORDER [None]
  - RHINITIS [None]
  - RHINITIS ALLERGIC [None]
  - SENILE OSTEOPOROSIS [None]
  - SINUSITIS [None]
  - URINARY TRACT INFECTION [None]
